FAERS Safety Report 9276703 (Version 2)
Quarter: 2013Q3

REPORT INFORMATION
  Report Type: Report from Study
  Country: FR (occurrence: FR)
  Receive Date: 20130507
  Receipt Date: 20130913
  Transmission Date: 20140515
  Serious: Yes (Hospitalization)
  Sender: FDA-Public Use
  Company Number: PHHO2013FR005950

PATIENT
  Age: 11 Year
  Sex: Female
  Weight: 33.5 kg

DRUGS (5)
  1. METHOTREXATE [Suspect]
     Dosage: 14.3 G, UNK
     Route: 042
     Dates: start: 20120907, end: 20130402
  2. IFOSFAMIDE [Suspect]
     Dosage: 3560 NG, (CUMULATIVE DOSE 7021 G)
     Route: 042
     Dates: start: 20120215, end: 20130420
  3. ZOLEDRONATE [Suspect]
     Indication: BONE SARCOMA
     Dosage: 1.6 MG,(CUMULATIVE DOSE 6.55 MG)
     Dates: start: 20120809, end: 20121031
  4. ETOPOSIDE [Concomitant]
     Dosage: 30 NG, UNK
     Route: 042
     Dates: start: 20120815, end: 20130222
  5. AOV VITAMIN D3 [Concomitant]
     Indication: PROPHYLAXIS
     Route: 048

REACTIONS (2)
  - Encephalitis [Not Recovered/Not Resolved]
  - Renal tubular disorder [Not Recovered/Not Resolved]
